FAERS Safety Report 17996576 (Version 2)
Quarter: 2021Q1

REPORT INFORMATION
  Report Type: Spontaneous
  Country: CA (occurrence: CA)
  Receive Date: 20200709
  Receipt Date: 20210222
  Transmission Date: 20210419
  Serious: Yes (Life-Threatening, Hospitalization, Other)
  Sender: FDA-Public Use
  Company Number: CA-TEVA-2020-CA-1797296

PATIENT
  Age: 1 Year
  Sex: Male
  Weight: 10 kg

DRUGS (36)
  1. ETOPOSIDE. [Suspect]
     Active Substance: ETOPOSIDE
     Indication: ACUTE MYELOID LEUKAEMIA
     Route: 042
  2. CYTARABINE INJECTION [Suspect]
     Active Substance: CYTARABINE
     Route: 042
  3. DAUNOMYCIN /00128201/ [Suspect]
     Active Substance: DAUNORUBICIN
     Indication: ACUTE MYELOID LEUKAEMIA
     Route: 042
  4. FUROSEMIDE. [Concomitant]
     Active Substance: FUROSEMIDE
  5. MYCAMINE [Concomitant]
     Active Substance: MICAFUNGIN SODIUM
  6. PREDNISONE. [Concomitant]
     Active Substance: PREDNISONE
  7. ETOPOSIDE. [Suspect]
     Active Substance: ETOPOSIDE
     Route: 042
  8. ACETAMINOPHEN. [Concomitant]
     Active Substance: ACETAMINOPHEN
  9. METHYLPREDNISOLONE NOS [Concomitant]
     Active Substance: METHYLPREDNISOLONE
  10. MORPHINE SULFATE INJ USP [Concomitant]
     Active Substance: MORPHINE SULFATE
  11. CYTARABINE INJECTION [Suspect]
     Active Substance: CYTARABINE
     Route: 042
  12. MITOXANTRONE [Suspect]
     Active Substance: MITOXANTRONE HYDROCHLORIDE
     Indication: ACUTE MYELOID LEUKAEMIA
     Route: 042
  13. HEPARIN CALCIUM [Concomitant]
     Active Substance: HEPARIN CALCIUM
  14. METRONIDAZOLE. [Concomitant]
     Active Substance: METRONIDAZOLE
  15. POLYETHYLENE GLYCOL [Concomitant]
     Active Substance: POLYETHYLENE GLYCOLS
     Route: 065
  16. RANITIDINE. [Concomitant]
     Active Substance: RANITIDINE
  17. CYTARABINE INJECTION [Suspect]
     Active Substance: CYTARABINE
     Indication: ACUTE MYELOID LEUKAEMIA
     Route: 042
  18. CYTARABINE INJECTION [Suspect]
     Active Substance: CYTARABINE
     Route: 037
  19. DAUNOMYCIN /00128201/ [Suspect]
     Active Substance: DAUNORUBICIN
     Route: 042
  20. CIPROFLOXACIN. [Concomitant]
     Active Substance: CIPROFLOXACIN
  21. DIMENHYDRINATE. [Concomitant]
     Active Substance: DIMENHYDRINATE
  22. FLUCONAZOLE. [Concomitant]
     Active Substance: FLUCONAZOLE
  23. CYTARABINE INJECTION [Suspect]
     Active Substance: CYTARABINE
     Route: 037
  24. ALLOPURINOL. [Concomitant]
     Active Substance: ALLOPURINOL
  25. METOCLOPRAMIDE. [Concomitant]
     Active Substance: METOCLOPRAMIDE
  26. LORAZEPAM. [Concomitant]
     Active Substance: LORAZEPAM
  27. ONDANSETRON [Concomitant]
     Active Substance: ONDANSETRON
  28. VANCOMYCIN [Concomitant]
     Active Substance: VANCOMYCIN
  29. ETOPOSIDE. [Suspect]
     Active Substance: ETOPOSIDE
     Route: 042
  30. ALTEPLASE (T?PA) [Concomitant]
  31. MEROPENEM. [Concomitant]
     Active Substance: MEROPENEM
  32. ZINC. [Concomitant]
     Active Substance: ZINC
  33. CYTARABINE INJECTION [Suspect]
     Active Substance: CYTARABINE
     Route: 037
  34. CYTARABINE INJECTION [Suspect]
     Active Substance: CYTARABINE
     Route: 042
  35. CETIRIZINE [Concomitant]
     Active Substance: CETIRIZINE HYDROCHLORIDE
  36. SULFAMETHOXAZOLE AND TRIMETHOPRIM [Concomitant]
     Active Substance: SULFAMETHOXAZOLE\TRIMETHOPRIM

REACTIONS (10)
  - Packed red blood cell transfusion [Unknown]
  - Aplastic anaemia [Unknown]
  - Febrile bone marrow aplasia [Unknown]
  - Febrile neutropenia [Unknown]
  - Pancytopenia [Unknown]
  - Bacteraemia [Unknown]
  - Pyrexia [Unknown]
  - Platelet transfusion [Unknown]
  - Aplasia [Unknown]
  - Full blood count decreased [Unknown]
